FAERS Safety Report 7312864 (Version 4)
Quarter: 2019Q2

REPORT INFORMATION
  Report Type: Report from Study
  Country: TH (occurrence: FR)
  Receive Date: 20100310
  Receipt Date: 20190618
  Transmission Date: 20190711
  Serious: Yes (Congenital Anomaly, Other)
  Sender: FDA-Public Use
  Company Number: FR-PFIZER INC-2010026853

PATIENT
  Sex: Male
  Weight: 3.16 kg

DRUGS (3)
  1. NELFINAVIR MESILATE [Suspect]
     Active Substance: NELFINAVIR MESYLATE
     Indication: HIV INFECTION
     Dosage: UNK
     Route: 064
     Dates: start: 20060202
  2. ZIDOVUDINE. [Suspect]
     Active Substance: ZIDOVUDINE
     Indication: HIV INFECTION
     Dosage: UNK
     Route: 064
     Dates: start: 20060202
  3. LAMIVUDINE. [Suspect]
     Active Substance: LAMIVUDINE
     Indication: HIV INFECTION
     Dosage: UNK
     Route: 064
     Dates: start: 20060202

REACTIONS (3)
  - Foetal exposure during pregnancy [Unknown]
  - Haemangioma congenital [Unknown]
  - Teratoma [Unknown]
